FAERS Safety Report 6024823-0 (Version None)
Quarter: 2008Q4

REPORT INFORMATION
  Report Type: 
  Country: None (occurrence: None)
  Receive Date: 20081230
  Receipt Date: 20081230
  Transmission Date: 20090506
  Serious: Yes (Other)
  Sender: FDA-Public Use
  Company Number: None

PATIENT
  Age: 53 Year
  Sex: Male
  Weight: 99.7913 kg

DRUGS (2)
  1. LYRICA [Suspect]
     Indication: LUMBAR SPINAL STENOSIS
     Dosage: 150MG TWICE DAILY PO
     Route: 048
     Dates: start: 20081219
  2. LYRICA [Suspect]
     Indication: NEURALGIA
     Dosage: 150MG TWICE DAILY PO
     Route: 048
     Dates: start: 20081219

REACTIONS (3)
  - DRUG INEFFECTIVE [None]
  - IMPAIRED WORK ABILITY [None]
  - SOMNOLENCE [None]
